FAERS Safety Report 9205782 (Version 1)
Quarter: 2013Q2

REPORT INFORMATION
  Report Type: Spontaneous
  Country: FR (occurrence: FR)
  Receive Date: 20130403
  Receipt Date: 20130403
  Transmission Date: 20140414
  Serious: Yes (Hospitalization, Other)
  Sender: FDA-Public Use
  Company Number: FR-009507513-1303FRA012116

PATIENT
  Age: 61 Year
  Sex: Female

DRUGS (7)
  1. TIENAM 500MG/500MG, POUDRE POUR PERFUSION [Suspect]
     Indication: SEPSIS
     Dosage: 500 MG, BID
     Route: 042
     Dates: start: 20130215, end: 20130222
  2. TIENAM 500MG/500MG, POUDRE POUR PERFUSION [Suspect]
     Indication: DIARRHOEA
  3. INVANZ [Suspect]
     Indication: SEPSIS
     Dosage: 1 G, UNK
     Route: 058
     Dates: start: 20130223, end: 20130304
  4. INVANZ [Suspect]
     Indication: DIARRHOEA
  5. CELLCEPT [Concomitant]
     Indication: RENAL TRANSPLANT
     Dosage: UNK
     Dates: start: 2011
  6. PROGRAF [Concomitant]
     Indication: RENAL TRANSPLANT
     Dosage: UNK
     Dates: start: 2011
  7. SOLUPRED [Concomitant]
     Indication: RENAL TRANSPLANT
     Dosage: UNK
     Dates: start: 2011

REACTIONS (3)
  - Disorientation [Recovered/Resolved]
  - Agranulocytosis [Recovering/Resolving]
  - Hallucination [Recovered/Resolved]
